FAERS Safety Report 11971598 (Version 3)
Quarter: 2016Q1

REPORT INFORMATION
  Report Type: Other
  Country: US (occurrence: US)
  Receive Date: 20160128
  Receipt Date: 20160331
  Transmission Date: 20160526
  Serious: Yes (Hospitalization, Other)
  Sender: FDA-Public Use
  Company Number: US-SHIRE-US201600503

PATIENT
  Age: 74 Year
  Sex: Female
  Weight: 58.5 kg

DRUGS (24)
  1. GATTEX [Suspect]
     Active Substance: TEDUGLUTIDE\WATER
     Indication: SHORT-BOWEL SYNDROME
     Dosage: 0.3 ML, 1X/DAY:QD
     Route: 058
     Dates: start: 201311, end: 201512
  2. PAROXETINE [Concomitant]
     Active Substance: PAROXETINE\PAROXETINE HYDROCHLORIDE
     Indication: PRODUCT USED FOR UNKNOWN INDICATION
     Dosage: 10 MG, AT 5PM
     Route: 048
  3. VITAMIN D3 [Concomitant]
     Active Substance: CHOLECALCIFEROL
     Dosage: 5000 IU, 1X/WEEK
     Route: 065
  4. TPN [Concomitant]
     Active Substance: AMINO ACIDS\DEXTROSE\ELECTROLYTES NOS\SOYBEAN OIL
     Indication: PARENTERAL NUTRITION
     Dosage: UNK UNK, OVER 12 HOURS
     Route: 042
     Dates: start: 201507
  5. ATIVAN [Concomitant]
     Active Substance: LORAZEPAM
     Indication: ANXIETY
     Dosage: 0.5 MG, Q8HR PRN AND NIGHTLY
     Route: 048
  6. IRON FERROUS GLUCONATE [Concomitant]
     Active Substance: FERROUS GLUCONATE
     Indication: PRODUCT USED FOR UNKNOWN INDICATION
     Dosage: 1 TABLET, 3X/DAY:TID
     Route: 048
  7. VITAMIN D3 [Concomitant]
     Active Substance: CHOLECALCIFEROL
     Indication: PRODUCT USED FOR UNKNOWN INDICATION
     Dosage: 1000 IU, 1X/DAY:QD
     Route: 048
  8. OPIUM TINCTURE [Concomitant]
     Active Substance: OPIUM TINCTURE
     Indication: PRODUCT USED FOR UNKNOWN INDICATION
     Dosage: 1 ML, 3X/DAY:TID AND AC AND HS
     Route: 048
  9. TPN [Concomitant]
     Active Substance: AMINO ACIDS\DEXTROSE\ELECTROLYTES NOS\SOYBEAN OIL
     Dosage: 1750 ML, OVER 12 HOURS
     Route: 042
     Dates: start: 201512
  10. ATORVA [Concomitant]
     Indication: PRODUCT USED FOR UNKNOWN INDICATION
     Dosage: 40 DF, UNK
     Route: 065
  11. NYSTATIN. [Concomitant]
     Active Substance: NYSTATIN
     Indication: PRODUCT USED FOR UNKNOWN INDICATION
     Dosage: UNK
     Route: 065
  12. CENTRUM PLUS [Concomitant]
     Active Substance: VITAMINS
     Indication: PRODUCT USED FOR UNKNOWN INDICATION
     Dosage: 1 TABLET, 1X/DAY:QD
     Route: 048
  13. VITAMIN D [Concomitant]
     Active Substance: CHOLECALCIFEROL
     Indication: PRODUCT USED FOR UNKNOWN INDICATION
     Dosage: 50000 IU, 1 TABLET 3 TIMES WEEKLY
     Route: 048
  14. ZINC [Concomitant]
     Active Substance: ZINC\ZINC CHLORIDE
     Indication: PRODUCT USED FOR UNKNOWN INDICATION
     Dosage: 0.5 TABLET, 2X/DAY:BID
     Route: 048
  15. TPN [Concomitant]
     Active Substance: AMINO ACIDS\DEXTROSE\ELECTROLYTES NOS\SOYBEAN OIL
     Dosage: UNK
     Route: 042
     Dates: start: 20160101
  16. CITRACAL PLUS D [Concomitant]
     Indication: PRODUCT USED FOR UNKNOWN INDICATION
     Dosage: 1 TABLET, 3X/DAY:TID
     Route: 048
  17. LOVENOX [Concomitant]
     Active Substance: ENOXAPARIN SODIUM
     Indication: PULMONARY EMBOLISM
     Dosage: UNK
     Dates: start: 201512
  18. PAROXETINE [Concomitant]
     Active Substance: PAROXETINE\PAROXETINE HYDROCHLORIDE
     Dosage: 30 MG, QHS
     Route: 048
  19. MAG OXIDE [Concomitant]
     Active Substance: MAGNESIUM OXIDE
     Indication: PRODUCT USED FOR UNKNOWN INDICATION
     Dosage: 3 TABLETS, 1X/DAY:QD
     Route: 048
  20. NEXIUM [Concomitant]
     Active Substance: ESOMEPRAZOLE MAGNESIUM
     Indication: PRODUCT USED FOR UNKNOWN INDICATION
     Dosage: 1 TABLET, 2X/DAY:BID
     Route: 048
  21. VITAMIN B12 [Concomitant]
     Active Substance: CYANOCOBALAMIN
     Indication: PRODUCT USED FOR UNKNOWN INDICATION
     Dosage: UNK, MONTHLY
     Route: 030
  22. ASPIRIN. [Concomitant]
     Active Substance: ASPIRIN
     Indication: PRODUCT USED FOR UNKNOWN INDICATION
     Dosage: 81 MG, 1X/DAY:QD
     Route: 065
  23. IMODIUM [Concomitant]
     Active Substance: LOPERAMIDE HYDROCHLORIDE
     Indication: PRODUCT USED FOR UNKNOWN INDICATION
     Dosage: 4 MG, AC AND HS
     Route: 048
  24. OPIUM TINCTURE [Concomitant]
     Active Substance: OPIUM TINCTURE
     Dosage: 1 GTT, BEFORE MEALS AND BEDTIME

REACTIONS (21)
  - Acute myocardial infarction [Unknown]
  - Pulmonary embolism [Recovered/Resolved]
  - Diarrhoea [Unknown]
  - Lethargy [Recovered/Resolved]
  - Tachycardia [Recovered/Resolved]
  - Ejection fraction decreased [Unknown]
  - Iron deficiency anaemia [Unknown]
  - Deep vein thrombosis [Unknown]
  - Hypotension [Recovered/Resolved]
  - Urinary incontinence [Recovered/Resolved]
  - Pyrexia [Recovered/Resolved]
  - Fistula [Unknown]
  - Fistula discharge [Unknown]
  - Respiratory failure [Recovered/Resolved]
  - Dehydration [Recovered/Resolved]
  - Mitral valve incompetence [Unknown]
  - Acute pulmonary oedema [Recovered/Resolved]
  - Somnolence [Recovered/Resolved]
  - Hypertension [Recovered/Resolved]
  - Device related sepsis [Recovered/Resolved]
  - Syncope [Recovered/Resolved]

NARRATIVE: CASE EVENT DATE: 201512
